FAERS Safety Report 8246614-2 (Version None)
Quarter: 2012Q1

REPORT INFORMATION
  Report Type: 
  Country: None (occurrence: None)
  Receive Date: 20120330
  Receipt Date: 20120328
  Transmission Date: 20120608
  Serious: Yes (Other)
  Sender: FDA-Public Use
  Company Number: JP-PFIZER INC-2012079968

PATIENT
  Age: 58 Year
  Sex: Male

DRUGS (3)
  1. ZOLOFT [Suspect]
     Dosage: 100 MG, UNK
     Route: 048
     Dates: start: 20120309, end: 20120314
  2. LITHIUM CARBONATE [Concomitant]
     Indication: BIPOLAR II DISORDER
     Dosage: 800 MG/DAY
     Route: 048
     Dates: start: 20120224
  3. ZOLOFT [Suspect]
     Indication: BIPOLAR II DISORDER
     Dosage: 50 MG, UNK
     Route: 048
     Dates: start: 20120224, end: 20120308

REACTIONS (4)
  - RASH [None]
  - SKIN EXFOLIATION [None]
  - PRURITUS [None]
  - ERYTHEMA [None]
